FAERS Safety Report 7212973-2 (Version None)
Quarter: 2011Q1

REPORT INFORMATION
  Report Type: 
  Country: None (occurrence: None)
  Receive Date: 20110106
  Receipt Date: 20101220
  Transmission Date: 20110831
  Serious: Yes (Hospitalization, Congenital Anomaly)
  Sender: FDA-Public Use
  Company Number: A0878192A

PATIENT
  Sex: Male
  Weight: 3 kg

DRUGS (1)
  1. PAROXETINE HYDROCHLORIDE [Suspect]
     Dates: start: 20040401

REACTIONS (8)
  - DRUG EXPOSURE DURING PREGNANCY [None]
  - FEEDING DISORDER [None]
  - RENAL DYSPLASIA [None]
  - CONGENITAL HYDROCEPHALUS [None]
  - DEVELOPMENTAL DELAY [None]
  - ENCEPHALOPATHY [None]
  - DANDY-WALKER SYNDROME [None]
  - CONGENITAL CYSTIC KIDNEY DISEASE [None]
